FAERS Safety Report 17004312 (Version 1)
Quarter: 2019Q4

REPORT INFORMATION
  Report Type: Report from Study
  Country: US (occurrence: US)
  Receive Date: 20191107
  Receipt Date: 20191107
  Transmission Date: 20200122
  Serious: Yes (Death, Life-Threatening, Hospitalization)
  Sender: FDA-Public Use
  Company Number: US-PFIZER INC-2019476807

PATIENT
  Sex: Male
  Weight: 71 kg

DRUGS (7)
  1. CYTARABINE. [Suspect]
     Active Substance: CYTARABINE
     Dosage: 70 MG, CYCLIC
     Route: 037
     Dates: start: 20190913, end: 20190913
  2. ONCASPAR [Suspect]
     Active Substance: PEGASPARGASE
     Dosage: 3750 IU, CYCLIC
     Dates: start: 20190918, end: 20190918
  3. METHOTREXATE SODIUM. [Suspect]
     Active Substance: METHOTREXATE SODIUM
     Dosage: 15 MG, CYCLIC (D8, BUT RECEIVED ON D9).
     Route: 037
     Dates: start: 20190923, end: 20190923
  4. DAUNORUBICIN [Suspect]
     Active Substance: DAUNORUBICIN
     Dosage: 25 MG/M2, CYCLIC
     Route: 042
     Dates: start: 20190915, end: 20191007
  5. DEXAMETHASONE. [Suspect]
     Active Substance: DEXAMETHASONE
     Dosage: 10 MG, CYCLIC
     Route: 048
     Dates: start: 20190915, end: 20190922
  6. VINCRISTINE SULFATE. [Suspect]
     Active Substance: VINCRISTINE SULFATE
     Dosage: 1.5 MG/M2, CYCLIC
     Dates: start: 20190915, end: 20191007
  7. DEXAMETHASONE. [Suspect]
     Active Substance: DEXAMETHASONE
     Dosage: 10 MG, 2X/DAY (ON 15SEP2019 TO 22SEP2019 (D1-7); TOTAL DOSE ADMINISTERED THIS COURSE: 280 MG);
     Dates: end: 20191007

REACTIONS (4)
  - Seizure [Unknown]
  - Haemorrhage intracranial [Unknown]
  - Embolism [Fatal]
  - Cerebral ischaemia [Unknown]

NARRATIVE: CASE EVENT DATE: 20191007
